FAERS Safety Report 5963335-7 (Version None)
Quarter: 2008Q4

REPORT INFORMATION
  Report Type: 
  Country: None (occurrence: None)
  Receive Date: 20081124
  Receipt Date: 20081117
  Transmission Date: 20090506
  Serious: Yes (Disabling)
  Sender: FDA-Public Use
  Company Number: A0754907A

PATIENT
  Age: 69 Year
  Sex: Female
  Weight: 68.6 kg

DRUGS (3)
  1. RHYTHMOL [Suspect]
     Indication: ATRIAL FIBRILLATION
     Dosage: 225MG TWICE PER DAY
     Route: 048
     Dates: start: 20080901, end: 20081001
  2. ADVIL [Concomitant]
     Dates: start: 20080901, end: 20081001
  3. NITROFURANTOIN [Concomitant]
     Indication: URINARY TRACT INFECTION
     Route: 048
     Dates: start: 20080901, end: 20080901

REACTIONS (6)
  - CHILLS [None]
  - HEPATIC FUNCTION ABNORMAL [None]
  - MALAISE [None]
  - MYALGIA [None]
  - PYREXIA [None]
  - URINARY TRACT INFECTION [None]
